FAERS Safety Report 8553584 (Version 4)
Quarter: 2012Q4

REPORT INFORMATION
  Report Type: Report from Study
  Country: MX (occurrence: MX)
  Receive Date: 20120509
  Receipt Date: 20121126
  Transmission Date: 20130627
  Serious: Yes (Disabling)
  Sender: FDA-Public Use
  Company Number: MX-ABBOTT-12P-107-0932321-00

PATIENT
  Age: 68 Year
  Sex: Female
  Weight: 78 kg

DRUGS (10)
  1. HUMIRA 40 MG/ 0.8 ML PRE-FILLED SYRINGE [Suspect]
     Indication: RHEUMATOID ARTHRITIS
     Route: 058
     Dates: start: 20120316
  2. FOLIC ACID [Concomitant]
     Indication: RHEUMATOID ARTHRITIS
     Route: 048
     Dates: start: 201112
  3. LOSARTAN [Concomitant]
     Indication: PAIN
     Route: 048
     Dates: start: 201112
  4. JANUVIA [Concomitant]
     Indication: PAIN
     Dosage: 1.5 tabs per day
     Route: 048
     Dates: start: 201112
  5. PREZOLAM [Concomitant]
     Indication: INSOMNIA
     Route: 048
     Dates: start: 201112
  6. NEXOPROPOXIFEN [Concomitant]
     Indication: COUGH
     Route: 048
     Dates: start: 201112
  7. METICORTEN [Concomitant]
     Indication: RHEUMATOID ARTHRITIS
     Dates: start: 201112
  8. CORTISONE [Concomitant]
     Indication: PRODUCT USED FOR UNKNOWN INDICATION
     Dates: start: 20120415, end: 20120415
  9. CORTISONE [Concomitant]
     Dates: start: 20120416, end: 20120416
  10. CORTISONE [Concomitant]
     Dates: start: 20120417, end: 20120417

REACTIONS (6)
  - Joint range of motion decreased [Not Recovered/Not Resolved]
  - Musculoskeletal stiffness [Not Recovered/Not Resolved]
  - Musculoskeletal pain [Recovered/Resolved]
  - Arthralgia [Not Recovered/Not Resolved]
  - Pain in extremity [Not Recovered/Not Resolved]
  - Arthralgia [Recovered/Resolved]
